FAERS Safety Report 4417228-7 (Version None)
Quarter: 2004Q3

REPORT INFORMATION
  Report Type: 
  Country: None (occurrence: None)
  Receive Date: 20040806
  Receipt Date: 20040729
  Transmission Date: 20050211
  Serious: Yes (Hospitalization)
  Sender: FDA-Public Use
  Company Number: DK-ROCHE-376126

PATIENT
  Age: 67 Year
  Sex: Female

DRUGS (4)
  1. CELLCEPT [Suspect]
     Indication: RHEUMATOID ARTHRITIS
     Route: 048
     Dates: start: 20040621, end: 20040702
  2. PREDNISOLONE [Concomitant]
     Indication: RHEUMATOID ARTHRITIS
     Route: 048
  3. TAMBOCOR [Concomitant]
     Route: 048
  4. FUROSEMIDE [Concomitant]
     Route: 048

REACTIONS (4)
  - CARDIAC FAILURE [None]
  - EPISCLERITIS [None]
  - PNEUMONIA [None]
  - PULMONARY EMBOLISM [None]
